FAERS Safety Report 15606381 (Version 2)
Quarter: 2018Q4

REPORT INFORMATION
  Report Type: Spontaneous
  Country: CH (occurrence: CH)
  Receive Date: 20181112
  Receipt Date: 20181114
  Transmission Date: 20190205
  Serious: Yes (Other)
  Sender: FDA-Public Use
  Company Number: CH-MYLANLABS-2018M1085051

PATIENT
  Age: 50 Year
  Sex: Male

DRUGS (2)
  1. BRUFEN [Suspect]
     Active Substance: IBUPROFEN
     Indication: POST-TRAUMATIC PAIN
     Dosage: 400 MG, TID 1200GQD
     Route: 048
     Dates: start: 20180828, end: 20180905
  2. DAFALGAN [Suspect]
     Active Substance: ACETAMINOPHEN
     Indication: POST-TRAUMATIC PAIN
     Dosage: 4 G, QD
     Route: 048
     Dates: start: 20180828, end: 20180905

REACTIONS (1)
  - Drug-induced liver injury [Recovered/Resolved]

NARRATIVE: CASE EVENT DATE: 20180906
